FAERS Safety Report 13017384 (Version 1)
Quarter: 2016Q4

REPORT INFORMATION
  Report Type: Spontaneous
  Country: IT (occurrence: IT)
  Receive Date: 20161212
  Receipt Date: 20161212
  Transmission Date: 20170207
  Serious: Yes (Hospitalization)
  Sender: FDA-Public Use
  Company Number: IT-ABBVIE-16P-083-1806991-00

PATIENT
  Age: 43 Year

DRUGS (1)
  1. DEPAKINE CHRONO [Suspect]
     Active Substance: VALPROATE SODIUM
     Indication: INTENTIONAL OVERDOSE
     Route: 048
     Dates: start: 20160912, end: 20160913

REACTIONS (1)
  - Drug abuse [Unknown]
